FAERS Safety Report 13542459 (Version 1)
Quarter: 2017Q2

REPORT INFORMATION
  Report Type: Spontaneous
  Country: US (occurrence: US)
  Receive Date: 20170512
  Receipt Date: 20170512
  Transmission Date: 20170830
  Serious: No
  Sender: FDA-Public Use
  Company Number: US-ROCHE-752767

PATIENT
  Age: 50 Year
  Sex: Male
  Weight: 79.5 kg

DRUGS (1)
  1. AVASTIN [Suspect]
     Active Substance: BEVACIZUMAB
     Indication: GLIOBLASTOMA MULTIFORME
     Dosage: FREQUENCY: EVERY 4-5 WEEKS
     Route: 042

REACTIONS (2)
  - Blood pressure increased [Unknown]
  - Proteinuria [Not Recovered/Not Resolved]
